FAERS Safety Report 8495750-4 (Version None)
Quarter: 2012Q3

REPORT INFORMATION
  Report Type: 
  Country: None (occurrence: None)
  Receive Date: 20120709
  Receipt Date: 20120626
  Transmission Date: 20120928
  Serious: Yes (Hospitalization, Other)
  Sender: FDA-Public Use
  Company Number: US-MSD JAPAN-1206USA04493

PATIENT

DRUGS (2)
  1. VORINOSTAT-MYCOSIS FUNGOIDES [Suspect]
     Indication: PANCREATIC CARCINOMA
     Dosage: 400 MG, QD
     Route: 048
     Dates: start: 20120523, end: 20120613
  2. CAPECITABINE [Suspect]
     Indication: PANCREATIC CARCINOMA
     Dosage: 1000 MG, BID
     Route: 048
     Dates: start: 20120523, end: 20120606

REACTIONS (8)
  - THROMBOCYTOPENIA [None]
  - NAUSEA [None]
  - ABDOMINAL DISTENSION [None]
  - CONSTIPATION [None]
  - WEIGHT DECREASED [None]
  - FUNCTIONAL GASTROINTESTINAL DISORDER [None]
  - ABDOMINAL PAIN [None]
  - DECREASED APPETITE [None]
